FAERS Safety Report 9348176 (Version 1)
Quarter: 2013Q2

REPORT INFORMATION
  Report Type: Spontaneous
  Country: GB (occurrence: GB)
  Receive Date: 20130614
  Receipt Date: 20130614
  Transmission Date: 20140414
  Serious: Yes (Death, Other)
  Sender: FDA-Public Use
  Company Number: GB-ROCHE-1224385

PATIENT
  Age: 60 Year
  Sex: Male
  Weight: 63.7 kg

DRUGS (3)
  1. AVASTIN [Suspect]
     Indication: COLON CANCER METASTATIC
     Dosage: DOSE: 300; TOTAL 5 CYCLES
     Route: 042
     Dates: start: 20130130, end: 20130326
  2. IRINOTECAN [Concomitant]
     Indication: COLON CANCER METASTATIC
     Route: 042
     Dates: start: 20130130, end: 20130326
  3. 5-FU [Concomitant]
     Indication: COLON CANCER METASTATIC
     Route: 042
     Dates: start: 20130130, end: 20130326

REACTIONS (3)
  - Intestinal perforation [Fatal]
  - Osteoarthritis [Fatal]
  - Cellulitis [Fatal]
